FAERS Safety Report 25937210 (Version 2)
Quarter: 2025Q4

REPORT INFORMATION
  Report Type: Report from Study
  Country: US (occurrence: None)
  Receive Date: 20251017
  Receipt Date: 20251124
  Transmission Date: 20260117
  Serious: Yes (Other)
  Sender: UCB
  Company Number: US-UCBSA-2025064967

PATIENT

DRUGS (2)
  1. BRIVARACETAM [Suspect]
     Active Substance: BRIVARACETAM
     Indication: Epilepsy
     Dosage: 100 MILLIGRAM, 2X/DAY (BID)
  2. NAYZILAM [Suspect]
     Active Substance: MIDAZOLAM
     Indication: Epilepsy
     Dosage: 5MG TOTAL BY NASAL ROUTE EVERY 10 MINUTES AS NEEDED FOR SEIZURES

REACTIONS (3)
  - Seizure [Recovered/Resolved]
  - Hand fracture [Not Recovered/Not Resolved]
  - Anxiety [Recovered/Resolved]
